FAERS Safety Report 20298543 (Version 15)
Quarter: 2023Q1

REPORT INFORMATION
  Report Type: Other
  Country: BE (occurrence: None)
  Receive Date: 20220105
  Receipt Date: 20230306
  Transmission Date: 20230417
  Serious: No
  Sender: FDA-Public Use
  Company Number: BE-ROCHE-2989761

PATIENT
  Age: 50 Year
  Sex: Female
  Weight: 85 kg

DRUGS (42)
  1. OCRELIZUMAB [Suspect]
     Active Substance: OCRELIZUMAB
     Indication: Relapsing-remitting multiple sclerosis
     Dosage: DOSE LAST OCRELIZUMAB ADMIN PRIOR ADVERSE EVENT: 02/AUG/2019 (281 ML)
     Route: 042
     Dates: start: 20190716
  2. OCRELIZUMAB [Suspect]
     Active Substance: OCRELIZUMAB
     Dosage: 25/AUG/2021 (H0052), 25/FEB/2021 (H0044), 25/FEB/2022 (H0056), 30/JAN/2020 (H0032), 26/AUG/2022 (H00
     Route: 042
     Dates: start: 20200827, end: 20200827
  3. PERDOLAN COMPOSITUM [Concomitant]
     Route: 054
     Dates: start: 2000
  4. AMIGRAN [RIBOFLAVIN] [Concomitant]
     Route: 048
     Dates: start: 20200820
  5. ZALDIAR [Concomitant]
     Active Substance: ACETAMINOPHEN\TRAMADOL HYDROCHLORIDE
     Dosage: 1 TABLET
     Route: 048
     Dates: start: 2000
  6. IMITREX [Concomitant]
     Active Substance: SUMATRIPTAN SUCCINATE
     Route: 058
     Dates: start: 2020
  7. BILASTINE [Concomitant]
     Active Substance: BILASTINE
     Route: 048
     Dates: start: 20210115
  8. SUMATRIPTAN [Concomitant]
     Active Substance: SUMATRIPTAN
     Route: 048
     Dates: start: 20100305
  9. VENLAFAXINE HYDROCHLORIDE [Concomitant]
     Active Substance: VENLAFAXINE HYDROCHLORIDE
     Route: 048
     Dates: start: 20210115, end: 202206
  10. VENLAFAXINE HYDROCHLORIDE [Concomitant]
     Active Substance: VENLAFAXINE HYDROCHLORIDE
     Route: 048
     Dates: start: 20210115, end: 20211208
  11. VENLAFAXINE HYDROCHLORIDE [Concomitant]
     Active Substance: VENLAFAXINE HYDROCHLORIDE
     Route: 048
     Dates: start: 20220119, end: 202206
  12. VENLAFAXINE HYDROCHLORIDE [Concomitant]
     Active Substance: VENLAFAXINE HYDROCHLORIDE
     Route: 048
     Dates: start: 202206, end: 202208
  13. AJOVY [Concomitant]
     Active Substance: FREMANEZUMAB-VFRM
     Route: 058
     Dates: start: 20210204
  14. CHOLECALCIFEROL [Concomitant]
     Active Substance: CHOLECALCIFEROL
     Dosage: 1 TIME PER WEEK
     Route: 048
     Dates: start: 20210608
  15. NEOTIGASON [Concomitant]
     Active Substance: ACITRETIN
     Route: 048
     Dates: start: 202101
  16. OTEZLA [Concomitant]
     Active Substance: APREMILAST
     Dosage: 1 TABLET
     Route: 048
     Dates: start: 202109, end: 20211208
  17. OTEZLA [Concomitant]
     Active Substance: APREMILAST
     Route: 048
     Dates: start: 202205
  18. CURCUMIN [Concomitant]
     Active Substance: CURCUMIN
     Indication: Prophylaxis
     Dosage: 1 CAPSULE
     Route: 048
     Dates: start: 2021
  19. FERROUS SULFATE [Concomitant]
     Active Substance: FERROUS SULFATE
     Indication: Prophylaxis
     Route: 048
     Dates: start: 202202
  20. SELENIUM [Concomitant]
     Active Substance: SELENIUM
     Indication: Prophylaxis
     Route: 048
     Dates: start: 202202, end: 202206
  21. SOLU-MEDROL [Concomitant]
     Active Substance: METHYLPREDNISOLONE SODIUM SUCCINATE
     Route: 048
     Dates: start: 20220225, end: 20220225
  22. CETIRIZINE [Concomitant]
     Active Substance: CETIRIZINE HYDROCHLORIDE
     Route: 048
     Dates: start: 20220225, end: 20220225
  23. DAFALGAN [Concomitant]
     Active Substance: ACETAMINOPHEN
     Route: 048
     Dates: start: 20220225, end: 20220225
  24. CYSTEINE [Concomitant]
     Active Substance: CYSTEINE
     Route: 048
     Dates: start: 202105
  25. VALPROATE SODIUM [Concomitant]
     Active Substance: VALPROATE SODIUM
     Dosage: NEXT DOSE RECEIVED ON 17/FEB/2022.
     Route: 048
     Dates: start: 20210124, end: 20220216
  26. VALPROATE SODIUM [Concomitant]
     Active Substance: VALPROATE SODIUM
     Route: 048
     Dates: start: 202207
  27. PANTOPRAZOLE SODIUM [Concomitant]
     Active Substance: PANTOPRAZOLE SODIUM
     Indication: Prophylaxis
     Route: 048
     Dates: start: 2017
  28. NADROPARIN CALCIUM [Concomitant]
     Active Substance: NADROPARIN CALCIUM
     Route: 058
     Dates: start: 20211208
  29. NADROPARIN CALCIUM [Concomitant]
     Active Substance: NADROPARIN CALCIUM
     Route: 058
     Dates: start: 20211208
  30. DEXAMETHASONE [Concomitant]
     Active Substance: DEXAMETHASONE
     Route: 048
     Dates: start: 20211208, end: 20211208
  31. MORPHINE [Concomitant]
     Active Substance: MORPHINE
     Route: 042
     Dates: start: 20211208, end: 20211208
  32. QUETIAPINE [Concomitant]
     Active Substance: QUETIAPINE
     Route: 048
     Dates: start: 20211218, end: 20220120
  33. BUMETANIDE [Concomitant]
     Active Substance: BUMETANIDE
     Route: 048
     Dates: start: 20220114
  34. BISOPROLOL FUMARATE [Concomitant]
     Active Substance: BISOPROLOL FUMARATE
     Route: 048
     Dates: start: 20220114
  35. NESTROLAN [Concomitant]
     Route: 048
     Dates: start: 20220114
  36. SEROQUEL [Concomitant]
     Active Substance: QUETIAPINE FUMARATE
     Route: 048
     Dates: start: 20220114
  37. SEROQUEL [Concomitant]
     Active Substance: QUETIAPINE FUMARATE
     Route: 048
     Dates: start: 20220114
  38. PIPAMPERONE [Concomitant]
     Active Substance: PIPAMPERONE
     Route: 048
     Dates: start: 20220114
  39. MOVICOL [Concomitant]
     Active Substance: POLYETHYLENE GLYCOL 3350\POTASSIUM CHLORIDE\SODIUM BICARBONATE\SODIUM CHLORIDE
     Route: 048
     Dates: start: 20220119
  40. TRAZODONE [Concomitant]
     Active Substance: TRAZODONE HYDROCHLORIDE
     Route: 048
     Dates: start: 20220117
  41. ETHINYL ESTRADIOL\LEVONORGESTREL [Concomitant]
     Active Substance: ETHINYL ESTRADIOL\LEVONORGESTREL
     Route: 048
     Dates: start: 20220617, end: 20220816
  42. DILTIAZEM [Concomitant]
     Active Substance: DILTIAZEM
     Route: 062
     Dates: start: 20211103

REACTIONS (1)
  - COVID-19 [Recovered/Resolved]

NARRATIVE: CASE EVENT DATE: 20211127
